FAERS Safety Report 4349826-3 (Version None)
Quarter: 2004Q2

REPORT INFORMATION
  Report Type: 
  Country: None (occurrence: None)
  Receive Date: 20040426
  Receipt Date: 20040421
  Transmission Date: 20050107
  Serious: Yes (Congenital Anomaly)
  Sender: FDA-Public Use
  Company Number: 2004-03-1672

PATIENT
  Age: 1 Day
  Weight: 2.8 kg

DRUGS (2)
  1. PEG-INTRON [Suspect]
     Indication: HEPATITIS C
     Dosage: 150 MCG QWK SUBCUTANEOUS
     Route: 058
     Dates: start: 20020511, end: 20021101
  2. REBETOL [Suspect]
     Indication: HEPATITIS C
     Dosage: 1200 MG QD ORAL
     Route: 048
     Dates: start: 20020511, end: 20021101

REACTIONS (3)
  - CAESAREAN SECTION [None]
  - TRANSMISSION OF DRUG VIA SEMEN [None]
  - TRISOMY 21 [None]
